FAERS Safety Report 7967382-5 (Version None)
Quarter: 2011Q4

REPORT INFORMATION
  Report Type: 
  Country: None (occurrence: None)
  Receive Date: 20111122
  Receipt Date: 20110726
  Transmission Date: 20120403
  Serious: No
  Sender: FDA-Public Use
  Company Number: PHHY2011US54775

PATIENT
  Age: 54 Year
  Sex: Female

DRUGS (11)
  1. NEXIUM [Concomitant]
  2. METOCLOPRAMIDE [Concomitant]
  3. AVONEX [Concomitant]
  4. ZANITRIN (CEFATRIZINE PROPYLENEGLYCOLATE) [Concomitant]
  5. HYOSCYAMINE (HYOSCYAMINE) [Concomitant]
  6. GILENYA [Suspect]
     Indication: MULTIPLE SCLEROSIS
     Dosage: 0.5 MG, DAILY, ORAL
     Route: 048
     Dates: start: 20110418, end: 20110617
  7. CYMBALTA [Concomitant]
  8. DIOVAN [Concomitant]
  9. TOPAMAX [Concomitant]
  10. CORGARD [Concomitant]
  11. PLAQUENIL [Concomitant]

REACTIONS (4)
  - SWELLING [None]
  - EYE IRRITATION [None]
  - BLOOD PRESSURE INCREASED [None]
  - RENAL DISORDER [None]
